FAERS Safety Report 6066093-3 (Version None)
Quarter: 2009Q1

REPORT INFORMATION
  Report Type: 
  Country: None (occurrence: None)
  Receive Date: 20090130
  Receipt Date: 20090120
  Transmission Date: 20090719
  Serious: Yes (Hospitalization)
  Sender: FDA-Public Use
  Company Number: 1000000234

PATIENT
  Age: 64 Year
  Sex: Female

DRUGS (6)
  1. ESCITALOPRAM OXALATE [Suspect]
     Indication: DEPRESSION
     Dosage: 10 MG (10 MG, 1 IN 1 D), ORAL
     Route: 048
     Dates: start: 20050101, end: 20080601
  2. CO-APROVEL [Suspect]
     Indication: ESSENTIAL HYPERTENSION
     Dosage: (2 IN 1 M), ORAL
     Route: 048
     Dates: start: 20050101, end: 20080601
  3. BECOZYME [Concomitant]
  4. BENERVA [Concomitant]
  5. IMPORTAL [Concomitant]
  6. SUPRADYN [Concomitant]

REACTIONS (8)
  - ALCOHOL WITHDRAWAL SYNDROME [None]
  - DRUG TOXICITY [None]
  - GASTRITIS [None]
  - GASTROOESOPHAGEAL REFLUX DISEASE [None]
  - HEPATIC FIBROSIS [None]
  - HEPATIC STEATOSIS [None]
  - HEPATITIS CHOLESTATIC [None]
  - OESOPHAGEAL ULCER [None]
